FAERS Safety Report 20513643 (Version 5)
Quarter: 2022Q2

REPORT INFORMATION
  Report Type: Spontaneous
  Country: US (occurrence: US)
  Receive Date: 20220224
  Receipt Date: 20220418
  Transmission Date: 20220720
  Serious: Yes (Other)
  Sender: FDA-Public Use
  Company Number: US-NOVARTISPH-NVSC2022US041981

PATIENT
  Age: 68 Year
  Sex: Female
  Weight: 74.83 kg

DRUGS (4)
  1. XIIDRA [Interacting]
     Active Substance: LIFITEGRAST
     Indication: Dry eye
     Dosage: 2GTT (DROP),BID
     Route: 047
     Dates: start: 20200101
  2. LATANOPROST [Interacting]
     Active Substance: LATANOPROST
     Indication: Product used for unknown indication
     Dosage: UNK
     Route: 065
  3. BIMATOPROST [Interacting]
     Active Substance: BIMATOPROST
     Indication: Product used for unknown indication
     Dosage: UNK
     Route: 065
  4. DORZOLAMIDE\TIMOLOL [Interacting]
     Active Substance: DORZOLAMIDE\TIMOLOL
     Indication: Product used for unknown indication
     Dosage: UNK
     Route: 065

REACTIONS (3)
  - Corneal opacity [Recovered/Resolved]
  - Drug interaction [Recovered/Resolved]
  - Product deposit [Unknown]

NARRATIVE: CASE EVENT DATE: 20220221
